FAERS Safety Report 18390553 (Version 3)
Quarter: 2020Q4

REPORT INFORMATION
  Report Type: Spontaneous
  Country: US (occurrence: US)
  Receive Date: 20201016
  Receipt Date: 20201208
  Transmission Date: 20210114
  Serious: Yes (Other)
  Sender: FDA-Public Use
  Company Number: US-HORIZON-2020HZN00095

PATIENT
  Age: 53 Year
  Sex: Female

DRUGS (14)
  1. PREDNISONE. [Concomitant]
     Active Substance: PREDNISONE
  2. ACETAZOLAMIDE. [Concomitant]
     Active Substance: ACETAZOLAMIDE
  3. BRIMONIDINE TARTRATE. [Concomitant]
     Active Substance: BRIMONIDINE TARTRATE
  4. NAPROXEN. [Concomitant]
     Active Substance: NAPROXEN
  5. ESCITALOPRAM [Concomitant]
     Active Substance: ESCITALOPRAM OXALATE
  6. OXYCODONE [Concomitant]
     Active Substance: OXYCODONE
  7. INSULIN [Concomitant]
     Active Substance: INSULIN NOS
  8. CALCIUM [Concomitant]
     Active Substance: CALCIUM
  9. PREDNISOLONE. [Concomitant]
     Active Substance: PREDNISOLONE
  10. BRIMONIDINE [Concomitant]
     Active Substance: BRIMONIDINE TARTRATE
  11. TEPEZZA [Suspect]
     Active Substance: TEPROTUMUMAB-TRBW
     Indication: ENDOCRINE OPHTHALMOPATHY
     Dosage: EVERY 3 WEEKS, 1000MG FIRST DOSE, THEN 2000MG
     Route: 050
     Dates: start: 202004
  12. LEVOTHYROXINE. [Concomitant]
     Active Substance: LEVOTHYROXINE
  13. LATANOPROST. [Concomitant]
     Active Substance: LATANOPROST
  14. ELIQUIS [Concomitant]
     Active Substance: APIXABAN

REACTIONS (10)
  - Eye pain [Recovered/Resolved]
  - Eye inflammation [Recovered/Resolved]
  - Diabetes mellitus [Recovering/Resolving]
  - Intraocular pressure increased [Recovering/Resolving]
  - Visual acuity reduced [Recovering/Resolving]
  - Corneal oedema [Recovering/Resolving]
  - Visual field defect [Not Recovered/Not Resolved]
  - Angle closure glaucoma [Unknown]
  - Headache [Unknown]
  - Flat anterior chamber of eye [Unknown]

NARRATIVE: CASE EVENT DATE: 202007
